FAERS Safety Report 4280500-8 (Version None)
Quarter: 2004Q1

REPORT INFORMATION
  Report Type: 
  Country: None (occurrence: None)
  Receive Date: 20040127
  Receipt Date: 20040119
  Transmission Date: 20041129
  Serious: Yes (Life-Threatening, Hospitalization, Disabling)
  Sender: FDA-Public Use
  Company Number: 2004GB00141

PATIENT
  Sex: Female
  Weight: 65 kg

DRUGS (6)
  1. ATENOLOL [Suspect]
     Indication: HYPERTENSION
     Dosage: 25 MG QD PO
     Route: 048
     Dates: start: 20040105, end: 20040105
  2. AMLODIPINE [Suspect]
     Indication: HYPERTENSION
     Dosage: 420 MG DAILY PO
     Route: 048
     Dates: start: 20040105, end: 20040105
  3. CHLORTHALIDONE [Suspect]
     Indication: HYPERTENSION
     Dosage: 875 MG DAILY PO
     Route: 048
     Dates: start: 20040105, end: 20040105
  4. BENYLIN [Concomitant]
  5. MELTUS EXPECTORANT [Concomitant]
  6. ANTI-HISTAMINE TAB [Concomitant]

REACTIONS (6)
  - BLOOD GLUCOSE DECREASED [None]
  - HEART RATE DECREASED [None]
  - HYPOTENSION [None]
  - OVERDOSE [None]
  - PLEURITIC PAIN [None]
  - PULMONARY EMBOLISM [None]
